FAERS Safety Report 8106983-0 (Version None)
Quarter: 2012Q1

REPORT INFORMATION
  Report Type: 
  Country: None (occurrence: None)
  Receive Date: 20120202
  Receipt Date: 20120202
  Transmission Date: 20120608
  Serious: No
  Sender: FDA-Public Use
  Company Number: None

PATIENT
  Age: 59 Year
  Sex: Female
  Weight: 50.802 kg

DRUGS (1)
  1. NIACIN [Suspect]
     Indication: BLOOD CHOLESTEROL INCREASED
     Dosage: 500MG
     Dates: start: 20111101, end: 20120131

REACTIONS (11)
  - ABDOMINAL DISTENSION [None]
  - NAUSEA [None]
  - PARAESTHESIA [None]
  - ASTHENIA [None]
  - VISION BLURRED [None]
  - MUSCULAR WEAKNESS [None]
  - DIZZINESS [None]
  - SENSORY LOSS [None]
  - ABDOMINAL DISCOMFORT [None]
  - NASOPHARYNGITIS [None]
  - ABDOMINAL PAIN UPPER [None]
